FAERS Safety Report 23815039 (Version 1)
Quarter: 2024Q2

REPORT INFORMATION
  Report Type: Spontaneous
  Country: US (occurrence: None)
  Receive Date: 20240502
  Receipt Date: 20240502
  Transmission Date: 20240716
  Serious: Yes (Disabling, Other)
  Sender: FDA-Public Use
  Company Number: None

PATIENT
  Sex: Male

DRUGS (1)
  1. ATORVASTATIN [Suspect]
     Active Substance: ATORVASTATIN
     Indication: Low density lipoprotein increased
     Dosage: FREQUENCY : AT BEDTIME;?
     Route: 048
     Dates: start: 20231105, end: 20231129

REACTIONS (4)
  - Sleep disorder [None]
  - Somnambulism [None]
  - Fall [None]
  - Concussion [None]

NARRATIVE: CASE EVENT DATE: 20231129
